FAERS Safety Report 7972749-5 (Version None)
Quarter: 2011Q4

REPORT INFORMATION
  Report Type: 
  Country: None (occurrence: None)
  Receive Date: 20111209
  Receipt Date: 20111128
  Transmission Date: 20120403
  Serious: Yes (Other)
  Sender: FDA-Public Use
  Company Number: 2011P1013699

PATIENT
  Age: 17 Year
  Sex: Female

DRUGS (1)
  1. DOXYCYCLINE [Suspect]
     Indication: ACNE

REACTIONS (9)
  - OESOPHAGEAL INJURY [None]
  - TRACHEAL STENOSIS [None]
  - OESOPHAGITIS [None]
  - ODYNOPHAGIA [None]
  - DYSPNOEA EXERTIONAL [None]
  - TRACHEAL DEVIATION [None]
  - DYSPHAGIA [None]
  - OESOPHAGEAL OBSTRUCTION [None]
  - OESOPHAGEAL STENOSIS [None]
